FAERS Safety Report 6027304-3 (Version None)
Quarter: 2009Q1

REPORT INFORMATION
  Report Type: 
  Country: None (occurrence: None)
  Receive Date: 20090105
  Receipt Date: 20090102
  Transmission Date: 20090719
  Serious: Yes (Disabling, Other)
  Sender: FDA-Public Use
  Company Number: A0762048A

PATIENT
  Age: 65 Year
  Sex: Female

DRUGS (6)
  1. EPIVIR [Suspect]
     Indication: HIV INFECTION
     Dosage: 150MG PER DAY
     Route: 048
     Dates: start: 20070901
  2. DIDANOSINE [Suspect]
     Dosage: 200MG PER DAY
     Route: 048
     Dates: start: 20070901
  3. KALETRA [Suspect]
     Dosage: 2TAB TWICE PER DAY
     Route: 048
     Dates: start: 20070901
  4. BACLOFEN [Concomitant]
  5. MULTI-VITAMIN [Concomitant]
  6. ASPIRIN [Concomitant]

REACTIONS (1)
  - DYSTONIA [None]
